FAERS Safety Report 5722695-2 (Version None)
Quarter: 2008Q2

REPORT INFORMATION
  Report Type: 
  Country: None (occurrence: None)
  Receive Date: 20080429
  Receipt Date: 20080207
  Transmission Date: 20081010
  Serious: No
  Sender: FDA-Public Use
  Company Number: US-ASTRAZENECA-2007UW28248

PATIENT
  Age: 66 Year
  Sex: Female
  Weight: 95.3 kg

DRUGS (9)
  1. NEXIUM [Suspect]
     Indication: GASTRINOMA
     Route: 048
  2. NEXIUM [Suspect]
     Indication: GASTROOESOPHAGEAL REFLUX DISEASE
     Route: 048
  3. NEXIUM [Suspect]
     Route: 048
  4. NEXIUM [Suspect]
     Route: 048
  5. ZANTAC [Concomitant]
  6. CARDIZEM [Concomitant]
  7. LEXAPRO [Concomitant]
  8. LIPITOR [Concomitant]
  9. KLONOPIN [Concomitant]

REACTIONS (6)
  - BREAST PAIN [None]
  - DYSPNOEA [None]
  - GASTRIC PH DECREASED [None]
  - GASTROOESOPHAGEAL REFLUX DISEASE [None]
  - HEADACHE [None]
  - MUSCULOSKELETAL CHEST PAIN [None]
